FAERS Safety Report 9210147 (Version 5)
Quarter: 2014Q3

REPORT INFORMATION
  Report Type: Report from Study
  Country: CA (occurrence: CA)
  Receive Date: 20130404
  Receipt Date: 20140701
  Transmission Date: 20150326
  Serious: Yes (Hospitalization, Other)
  Sender: FDA-Public Use
  Company Number: CA-ROCHE-1181086

PATIENT
  Age: 73 Year
  Sex: Female

DRUGS (12)
  1. AVAPRO [Concomitant]
     Active Substance: IRBESARTAN
  2. ZOCOR [Concomitant]
     Active Substance: SIMVASTATIN
  3. ACTONEL [Concomitant]
     Active Substance: RISEDRONATE SODIUM
  4. METHYLPREDNISOLONE [Concomitant]
     Active Substance: METHYLPREDNISOLONE
     Indication: PREMEDICATION
     Route: 042
     Dates: start: 20120830
  5. RITUXAN [Suspect]
     Active Substance: RITUXIMAB
     Indication: RHEUMATOID ARTHRITIS
     Dosage: LAST DOSE PRIOR TO AE ON 13/SEP/2012
     Route: 042
     Dates: start: 20120830
  6. REMICADE [Suspect]
     Active Substance: INFLIXIMAB
     Indication: RHEUMATOID ARTHRITIS
     Route: 065
  7. ASA [Concomitant]
     Active Substance: ASPIRIN
  8. PANTOLOC [Concomitant]
     Active Substance: PANTOPRAZOLE SODIUM
  9. CLONIDINE. [Concomitant]
     Active Substance: CLONIDINE
  10. LOPRESSOR [Concomitant]
     Active Substance: METOPROLOL TARTRATE
  11. SYNTHROID [Concomitant]
     Active Substance: LEVOTHYROXINE SODIUM
  12. FERROUS SULFATE [Concomitant]
     Active Substance: FERROUS SULFATE\FERROUS SULFATE, DRIED

REACTIONS (6)
  - Fatigue [Not Recovered/Not Resolved]
  - Cardiac disorder [Recovering/Resolving]
  - Impaired healing [Not Recovered/Not Resolved]
  - Hypertension [Recovering/Resolving]
  - Diverticulitis [Recovering/Resolving]
  - Arthralgia [Not Recovered/Not Resolved]

NARRATIVE: CASE EVENT DATE: 20130328
